FAERS Safety Report 8594256-1 (Version None)
Quarter: 2012Q3

REPORT INFORMATION
  Report Type: 
  Country: None (occurrence: None)
  Receive Date: 20120815
  Receipt Date: 20120809
  Transmission Date: 20120928
  Serious: Yes (Hospitalization)
  Sender: FDA-Public Use
  Company Number: US-009507513-1208USA004648

PATIENT

DRUGS (18)
  1. CANCIDAS [Suspect]
     Indication: FUNGAL INFECTION
     Dosage: 50 MG, QD
     Route: 042
     Dates: start: 20120717
  2. ATIVAN [Concomitant]
  3. METHOTREXATE [Concomitant]
  4. MERCAPTOPURINE [Concomitant]
  5. LITHIUM CARBONATE [Concomitant]
  6. SCOPOLAMINE [Concomitant]
  7. BACTRIM [Concomitant]
  8. MELATONIN [Concomitant]
  9. CLONIDINE [Concomitant]
  10. PREVACID [Concomitant]
  11. NORVASC [Concomitant]
  12. MARINOL [Concomitant]
  13. LOVENOX [Concomitant]
  14. ACETAMINOPHEN/HYDROCODONE BITARTRATE [Concomitant]
  15. LEUCOVORIN CALCIUM [Concomitant]
  16. POTASSIUM (UNSPECIFIED) [Concomitant]
     Route: 048
  17. ZOFRAN [Concomitant]
  18. MORPHINE [Concomitant]

REACTIONS (1)
  - BLOOD PHOSPHORUS INCREASED [None]
